FAERS Safety Report 5965423-8 (Version None)
Quarter: 2008Q4

REPORT INFORMATION
  Report Type: 
  Country: None (occurrence: None)
  Receive Date: 20081125
  Receipt Date: 20081005
  Transmission Date: 20090506
  Serious: No
  Sender: FDA-Public Use
  Company Number: US-AMGEN-KDL311576

PATIENT
  Sex: Male

DRUGS (6)
  1. ENBREL [Suspect]
     Indication: PSORIASIS
     Route: 058
  2. UNKNOWN [Concomitant]
  3. MULTI-VITAMINS [Concomitant]
  4. NORVASC [Concomitant]
  5. TRUVADA [Concomitant]
  6. UNKNOWN [Concomitant]

REACTIONS (2)
  - FATIGUE [None]
  - HEADACHE [None]
